FAERS Safety Report 16173667 (Version 1)
Quarter: 2019Q2

REPORT INFORMATION
  Report Type: Spontaneous
  Country: US (occurrence: US)
  Receive Date: 20190408
  Receipt Date: 20190408
  Transmission Date: 20190711
  Serious: Yes (Hospitalization)
  Sender: FDA-Public Use
  Company Number: None

PATIENT
  Sex: Female

DRUGS (14)
  1. ALLOPURINOL. [Concomitant]
     Active Substance: ALLOPURINOL
  2. ATOVAQUONE. [Suspect]
     Active Substance: ATOVAQUONE
     Indication: IMMUNE SYSTEM DISORDER
     Route: 048
     Dates: start: 20181206
  3. NOXAFIL [Suspect]
     Active Substance: POSACONAZOLE
     Indication: IMMUNE SYSTEM DISORDER
     Route: 048
     Dates: start: 20181113
  4. HYDROXYZ [Concomitant]
     Active Substance: HYDROXYZINE HYDROCHLORIDE
  5. NAC 600 [Concomitant]
  6. OMEPRAZOLE. [Concomitant]
     Active Substance: OMEPRAZOLE
  7. TRIAMCINOLON [Concomitant]
  8. MAG OXIDE [Concomitant]
     Active Substance: MAGNESIUM OXIDE
  9. ONDANSETRON [Concomitant]
     Active Substance: ONDANSETRON
  10. HYDROXYUREA. [Concomitant]
     Active Substance: HYDROXYUREA
  11. BUDESONIDE. [Concomitant]
     Active Substance: BUDESONIDE
  12. RULOX REGULAR [Concomitant]
     Active Substance: ALUMINUM HYDROXIDE\DIMETHICONE\MAGNESIUM HYDROXIDE
  13. VALACYCLOVIR [Concomitant]
     Active Substance: VALACYCLOVIR HYDROCHLORIDE
  14. VIRT-PHOS [Concomitant]

REACTIONS (1)
  - Hospitalisation [None]
